FAERS Safety Report 25264441 (Version 1)
Quarter: 2025Q2

REPORT INFORMATION
  Report Type: Report from Study
  Country: US (occurrence: US)
  Receive Date: 20250502
  Receipt Date: 20250502
  Transmission Date: 20250717
  Serious: Yes (Hospitalization, Other)
  Sender: JOHNSON AND JOHNSON
  Company Number: US-JNJFOC-20250433729

PATIENT

DRUGS (1)
  1. SPRAVATO [Suspect]
     Active Substance: ESKETAMINE
     Indication: Product used for unknown indication
     Route: 045
     Dates: start: 2024

REACTIONS (8)
  - Hospitalisation [Unknown]
  - Upper limb fracture [Unknown]
  - Blood disorder [Unknown]
  - Cardiac disorder [Unknown]
  - Head injury [Unknown]
  - Pain [Unknown]
  - Memory impairment [Unknown]
  - Nervous system disorder [Unknown]
